FAERS Safety Report 25213912 (Version 1)
Quarter: 2025Q2

REPORT INFORMATION
  Report Type: Spontaneous
  Country: US (occurrence: None)
  Receive Date: 20250418
  Receipt Date: 20250418
  Transmission Date: 20250716
  Serious: Yes (Hospitalization)
  Sender: FDA-CTU
  Company Number: None

PATIENT
  Age: 73 Year
  Sex: Male
  Weight: 96.6 kg

DRUGS (3)
  1. APALUTAMIDE [Suspect]
     Active Substance: APALUTAMIDE
     Dates: end: 20250314
  2. CITALOPRAM [Suspect]
     Active Substance: CITALOPRAM
  3. ZOLPIDEM [Suspect]
     Active Substance: ZOLPIDEM TARTRATE

REACTIONS (7)
  - Prostatic specific antigen increased [None]
  - Cough [None]
  - Dyspnoea [None]
  - Electrocardiogram QT prolonged [None]
  - Bone lesion [None]
  - Vomiting [None]
  - Lethargy [None]

NARRATIVE: CASE EVENT DATE: 20250312
